FAERS Safety Report 26047548 (Version 1)
Quarter: 2025Q4

REPORT INFORMATION
  Report Type: Spontaneous
  Country: US (occurrence: US)
  Receive Date: 20251114
  Receipt Date: 20251114
  Transmission Date: 20260117
  Serious: No
  Sender: ROCHE
  Company Number: US-ROCHE-10000433387

PATIENT
  Sex: Female

DRUGS (6)
  1. XOLAIR PFS [Suspect]
     Active Substance: OMALIZUMAB
     Indication: Asthma
     Route: 058
     Dates: start: 2024, end: 2025
  2. XOLAIR PFS [Suspect]
     Active Substance: OMALIZUMAB
  3. CARVEDILOL [Concomitant]
     Active Substance: CARVEDILOL
  4. Oxycodone HC Tab [Concomitant]
  5. Pantoprazole TBE [Concomitant]
  6. PRAVASTATIN [Concomitant]
     Active Substance: PRAVASTATIN

REACTIONS (1)
  - Eye inflammation [Recovered/Resolved]
